FAERS Safety Report 9052432 (Version 2)
Quarter: 2013Q1

REPORT INFORMATION
  Report Type: Spontaneous
  Country: FR (occurrence: FR)
  Receive Date: 20130207
  Receipt Date: 20130215
  Transmission Date: 20140127
  Serious: Yes (Other)
  Sender: FDA-Public Use
  Company Number: FR-PFIZER INC-2013049270

PATIENT
  Age: 39 Year
  Sex: Female

DRUGS (6)
  1. PANTOPRAZOLE [Suspect]
     Indication: HELICOBACTER GASTRITIS
     Dosage: UNK
     Route: 048
     Dates: start: 20121023, end: 20121026
  2. PYRIDOXINE [Suspect]
     Dosage: UNK
     Route: 048
     Dates: start: 20121024, end: 20121026
  3. SODIUM ALGINATE [Suspect]
     Dosage: UNK
     Route: 048
     Dates: start: 20121024, end: 20121026
  4. STRESAM [Suspect]
     Dosage: UNK
     Route: 048
     Dates: start: 20121024, end: 20121026
  5. XYLOCAINE [Concomitant]
     Dosage: UNK
     Dates: start: 20121023, end: 20121023
  6. IOMERON [Concomitant]
     Dosage: UNK
     Dates: start: 20121016, end: 20121016

REACTIONS (4)
  - Rash maculo-papular [Recovered/Resolved with Sequelae]
  - Pruritus [Recovered/Resolved with Sequelae]
  - Oedema mouth [Unknown]
  - Lip oedema [Unknown]
